FAERS Safety Report 19444831 (Version 1)
Quarter: 2021Q2

REPORT INFORMATION
  Report Type: Spontaneous
  Country: US (occurrence: US)
  Receive Date: 20210621
  Receipt Date: 20210621
  Transmission Date: 20210717
  Serious: No
  Sender: FDA-Public Use
  Company Number: US-SA-2021SA203024

PATIENT
  Age: 56 Year
  Sex: Male

DRUGS (2)
  1. DUPIXENT [Suspect]
     Active Substance: DUPILUMAB
     Indication: DERMATITIS ATOPIC
     Dosage: LOADING DOSE ONE IN EACH THIGH 2 WEEKS AGO , 1X
     Dates: start: 2021, end: 2021
  2. DUPIXENT [Suspect]
     Active Substance: DUPILUMAB
     Dosage: 300 MG, QOW
     Dates: start: 20210614

REACTIONS (7)
  - Hypoaesthesia [Unknown]
  - Pruritus [Unknown]
  - Hypertension [Recovered/Resolved]
  - Erythema [Unknown]
  - Heart rate increased [Recovered/Resolved]
  - Rash [Unknown]
  - Condition aggravated [Unknown]

NARRATIVE: CASE EVENT DATE: 20210614
